FAERS Safety Report 21171690 (Version 1)
Quarter: 2022Q3

REPORT INFORMATION
  Report Type: Spontaneous
  Country: CA (occurrence: CA)
  Receive Date: 20220804
  Receipt Date: 20220804
  Transmission Date: 20221027
  Serious: Yes (Death)
  Sender: FDA-Public Use
  Company Number: CA-PFIZER INC-202201029920

PATIENT
  Age: 61 Year
  Sex: Male

DRUGS (4)
  1. XELJANZ [Suspect]
     Active Substance: TOFACITINIB CITRATE
     Indication: Rheumatoid arthritis
     Dosage: 5 MG, 2X/DAY
     Route: 048
     Dates: start: 201909
  2. MORPHINE [Concomitant]
     Active Substance: MORPHINE
  3. ADVIL [Concomitant]
     Active Substance: IBUPROFEN
  4. FENTANYL [Concomitant]
     Active Substance: FENTANYL

REACTIONS (1)
  - Death [Fatal]
